FAERS Safety Report 8082748-3 (Version None)
Quarter: 2012Q1

REPORT INFORMATION
  Report Type: 
  Country: None (occurrence: None)
  Receive Date: 20120127
  Receipt Date: 20110207
  Transmission Date: 20120608
  Serious: No
  Sender: FDA-Public Use
  Company Number: US-ABBOTT-11P-163-0703775-00

PATIENT
  Age: 30 Year

DRUGS (1)
  1. HUMIRA [Suspect]
     Indication: CROHN'S DISEASE
     Dosage: ON HOLD FOR THE EVENT
     Dates: start: 20101101

REACTIONS (1)
  - ORAL HERPES [None]
